FAERS Safety Report 16481460 (Version 3)
Quarter: 2019Q3

REPORT INFORMATION
  Report Type: Spontaneous
  Country: JP (occurrence: JP)
  Receive Date: 20190627
  Receipt Date: 20190927
  Transmission Date: 20191004
  Serious: Yes (Death, Hospitalization, Disabling, Other)
  Sender: FDA-Public Use
  Company Number: JP-BRISTOL-MYERS SQUIBB COMPANY-BMS-2019-062206

PATIENT
  Age: 78 Year
  Sex: Female
  Weight: 64.7 kg

DRUGS (1)
  1. OPDIVO [Suspect]
     Active Substance: NIVOLUMAB
     Indication: NON-SMALL CELL LUNG CANCER RECURRENT
     Dosage: 240 MILLIGRAM
     Route: 041
     Dates: start: 20190228, end: 20190425

REACTIONS (7)
  - Malaise [Unknown]
  - Malignant neoplasm progression [Fatal]
  - Cerebral infarction [Not Recovered/Not Resolved]
  - Deep vein thrombosis [Recovered/Resolved]
  - Pulmonary embolism [Recovered/Resolved]
  - Retinal artery occlusion [Recovered/Resolved with Sequelae]
  - Thrombosis [Unknown]

NARRATIVE: CASE EVENT DATE: 20190301
